FAERS Safety Report 13399103 (Version 1)
Quarter: 2017Q2

REPORT INFORMATION
  Report Type: Spontaneous
  Country: JP (occurrence: JP)
  Receive Date: 20170404
  Receipt Date: 20170404
  Transmission Date: 20170830
  Serious: No
  Sender: FDA-Public Use
  Company Number: JP-LUPIN PHARMACEUTICALS INC.-2017-00296

PATIENT
  Age: 67 Year
  Sex: Female

DRUGS (3)
  1. SERTRALINE [Suspect]
     Active Substance: SERTRALINE HYDROCHLORIDE
     Indication: DEPRESSION
     Dosage: UNK UNK,UNK,UNKNOWN
     Route: 065
     Dates: start: 2002, end: 201105
  2. TANDOSPIRONE [Suspect]
     Active Substance: TANDOSPIRONE
     Indication: DEPRESSION
     Dosage: UNK UNK,UNK,UNKNOWN
     Route: 065
     Dates: start: 2002, end: 201105
  3. SULPIRIDE [Suspect]
     Active Substance: SULPIRIDE
     Indication: DEPRESSION
     Dosage: UNK UNK,UNK,UNKNOWN
     Route: 065
     Dates: start: 2002, end: 201105

REACTIONS (1)
  - Plagiocephaly [Unknown]
